FAERS Safety Report 16387224 (Version 3)
Quarter: 2019Q2

REPORT INFORMATION
  Report Type: Report from Study
  Country: FR (occurrence: FR)
  Receive Date: 20190604
  Receipt Date: 20190620
  Transmission Date: 20190711
  Serious: Yes (Other)
  Sender: FDA-Public Use
  Company Number: FR-AEGERION PHARMACEUTICAL, INC-AEGR004298

PATIENT

DRUGS (2)
  1. METRELEPTIN [Suspect]
     Active Substance: METRELEPTIN
     Indication: PRODUCT USED FOR UNKNOWN INDICATION
     Dosage: 2.3 MG, QD
     Route: 058
     Dates: start: 20190107
  2. METRELEPTIN [Suspect]
     Active Substance: METRELEPTIN
     Dosage: 2.9 MG, QD
     Route: 058
     Dates: start: 20190419

REACTIONS (3)
  - Condition aggravated [Unknown]
  - Alanine aminotransferase increased [Unknown]
  - Drug ineffective [Unknown]
